FAERS Safety Report 17893601 (Version 1)
Quarter: 2020Q2

REPORT INFORMATION
  Report Type: Spontaneous
  Country: FR (occurrence: FR)
  Receive Date: 20200615
  Receipt Date: 20200615
  Transmission Date: 20200714
  Serious: Yes (Hospitalization)
  Sender: FDA-Public Use
  Company Number: FR-CADILA HEALTHCARE LIMITED-FR-ZYDUS-026394

PATIENT

DRUGS (4)
  1. PIPERACILLINE [Suspect]
     Active Substance: PIPERACILLIN SODIUM
     Indication: ARTHRITIS
     Dosage: 12 MILLIGRAM,(INTERVAL :1 DAYS)
     Route: 042
     Dates: start: 20180710, end: 20180724
  2. LEVOFLOXACIN. [Suspect]
     Active Substance: LEVOFLOXACIN
     Indication: ARTHRITIS
     Dosage: 1000 MILLIGRAM
     Route: 048
     Dates: start: 20180712
  3. AMOXICILLINE [Concomitant]
     Active Substance: AMOXICILLIN
     Dosage: 4 GRAM,(INTERVAL :1 DAYS)
     Route: 042
     Dates: start: 20180704, end: 20180710
  4. GENTAMICINE [Concomitant]
     Active Substance: GENTAMICIN
     Dosage: 400 MILLIGRAM,(INTERVAL :1 DAYS)
     Route: 042
     Dates: start: 20180704, end: 20180709

REACTIONS (4)
  - Hyperferritinaemia [Recovered/Resolved]
  - Hypertriglyceridaemia [Recovered/Resolved]
  - Hepatitis [Recovered/Resolved]
  - Pyrexia [Recovered/Resolved]

NARRATIVE: CASE EVENT DATE: 20180722
